FAERS Safety Report 4847674-9 (Version None)
Quarter: 2005Q4

REPORT INFORMATION
  Report Type: 
  Country: None (occurrence: None)
  Receive Date: 20051205
  Receipt Date: 20051121
  Transmission Date: 20060501
  Serious: Yes (Hospitalization)
  Sender: FDA-Public Use
  Company Number: 2005-04589

PATIENT
  Age: 33 Year
  Sex: Male
  Weight: 95 kg

DRUGS (2)
  1. CLINDAMHYCIN HYDROCHLORIDE (WATSON LABORATORIES) (CLINDAMYCIN HYDROCHL [Suspect]
     Indication: FURUNCLE
     Dosage: 150 MG, BID, ORAL
     Route: 048
     Dates: start: 20050917, end: 20050918
  2. FLUVOXAMINE MALEATE [Suspect]
     Indication: DEPRESSION
     Dosage: 100 MG, BID, ORAL
     Route: 048
     Dates: start: 20050814

REACTIONS (2)
  - DYSKINESIA [None]
  - EXTRAPYRAMIDAL DISORDER [None]
